FAERS Safety Report 9014241 (Version 1)
Quarter: 2013Q1

REPORT INFORMATION
  Report Type: Report from Study
  Country: DE (occurrence: DE)
  Receive Date: 20130115
  Receipt Date: 20130115
  Transmission Date: 20140127
  Serious: Yes (Hospitalization)
  Sender: FDA-Public Use
  Company Number: DE-ABBOTT-13P-062-1033933-00

PATIENT
  Age: 32 Year
  Sex: Female
  Weight: 55 kg

DRUGS (2)
  1. HUMIRA [Suspect]
     Indication: CROHN^S DISEASE
     Route: 050
     Dates: start: 20091029
  2. AZATHIOPRINE [Concomitant]
     Indication: CROHN^S DISEASE
     Dosage: DAILY
     Dates: start: 20090324

REACTIONS (1)
  - Anal fistula [Recovered/Resolved]
